FAERS Safety Report 19922716 (Version 2)
Quarter: 2021Q4

REPORT INFORMATION
  Report Type: Spontaneous
  Country: US (occurrence: US)
  Receive Date: 20211005
  Receipt Date: 20211229
  Transmission Date: 20220303
  Serious: No
  Sender: FDA-Public Use
  Company Number: US-AVEO ONCOLOGY-2021-AVEO-US003418

PATIENT

DRUGS (28)
  1. FOTIVDA [Suspect]
     Active Substance: TIVOZANIB HYDROCHLORIDE
     Indication: Renal cell carcinoma
     Dosage: 1.34 MG, DAILY 21 DAYS ON 7 DAYS OFF
     Route: 048
     Dates: start: 20210610
  2. ABIRATERONE ACETATE [Concomitant]
     Active Substance: ABIRATERONE ACETATE
  3. ADVIL DUAL ACTION WITH ACETAMINOPHEN [Concomitant]
     Active Substance: ACETAMINOPHEN\IBUPROFEN
  4. CIALIS [Concomitant]
     Active Substance: TADALAFIL
  5. DEXAMETHASONE [Concomitant]
     Active Substance: DEXAMETHASONE
  6. FIRMAGON [Concomitant]
     Active Substance: DEGARELIX ACETATE
  7. GARLIC OIL [Concomitant]
     Active Substance: GARLIC OIL
  8. GINGER [Concomitant]
     Active Substance: GINGER
  9. Grapeseed extract [Concomitant]
  10. LEUKINE [Concomitant]
     Active Substance: SARGRAMOSTIM
  11. MELATONIN [Concomitant]
     Active Substance: MELATONIN
  12. Sea Iodine [Concomitant]
  13. VITAMIN D3 [Concomitant]
     Active Substance: CHOLECALCIFEROL
  14. HOMEOPATHICS [Concomitant]
     Active Substance: HOMEOPATHICS
  15. FERROUS SULFATE [Concomitant]
     Active Substance: FERROUS SULFATE
  16. EGGPLANT [Concomitant]
     Active Substance: EGGPLANT
  17. ESSIAC [Concomitant]
  18. IP-6 Gold [Concomitant]
  19. MORPHINE [Concomitant]
     Active Substance: MORPHINE
  20. Now Brand Bone strength [Concomitant]
  21. Noxylane [Concomitant]
  22. SELENIUM [Concomitant]
     Active Substance: SELENIUM
  23. HERBALS\TURMERIC [Concomitant]
     Active Substance: HERBALS\TURMERIC
  24. VITAMIN B12 [Concomitant]
     Active Substance: CYANOCOBALAMIN
  25. VITAMIN C [Concomitant]
     Active Substance: ASCORBIC ACID
  26. ZINC GLUCONATE [Concomitant]
     Active Substance: ZINC GLUCONATE
  27. ZOLOFT [Concomitant]
     Active Substance: SERTRALINE HYDROCHLORIDE
  28. VITAMINS [Concomitant]
     Active Substance: VITAMINS

REACTIONS (5)
  - Fatigue [Unknown]
  - Back pain [Unknown]
  - Off label use [Unknown]
  - Joint swelling [Unknown]
  - Pain [Unknown]
